FAERS Safety Report 10067850 (Version 1)
Quarter: 2014Q2

REPORT INFORMATION
  Report Type: Report from Study
  Country: FR (occurrence: FR)
  Receive Date: 20140409
  Receipt Date: 20140409
  Transmission Date: 20141212
  Serious: Yes (Other)
  Sender: FDA-Public Use
  Company Number: FR-MPIJNJ-2014JNJ001399

PATIENT
  Sex: 0

DRUGS (1)
  1. VELCADE [Suspect]
     Indication: PLASMA CELL MYELOMA
     Dosage: UNK
     Route: 065
     Dates: start: 20120514, end: 20120616

REACTIONS (4)
  - Aplasia [Recovered/Resolved]
  - Cardiac failure [Recovered/Resolved]
  - Bronchopneumonia [Recovered/Resolved]
  - Pain in extremity [Recovered/Resolved]
